FAERS Safety Report 9520716 (Version 1)
Quarter: 2013Q3

REPORT INFORMATION
  Report Type: Spontaneous
  Country: US (occurrence: US)
  Receive Date: 20130913
  Receipt Date: 20130913
  Transmission Date: 20140515
  Serious: Yes (Hospitalization)
  Sender: FDA-Public Use
  Company Number: US-ROCHE-1272550

PATIENT
  Sex: Male

DRUGS (4)
  1. CELLCEPT [Suspect]
     Indication: TRANSPLANT
     Dosage: START 13 YEARS AGO
     Route: 048
  2. CARVEDILOL [Concomitant]
     Indication: BLOOD PRESSURE
     Route: 065
  3. CLONIDINE [Concomitant]
     Indication: BLOOD PRESSURE
     Route: 065
  4. LASIX [Concomitant]
     Indication: OEDEMA PERIPHERAL
     Dosage: START 13 YRS AGO, STOP 2 MONTHS AGO
     Route: 065

REACTIONS (4)
  - Cerebrovascular accident [Unknown]
  - Drug dose omission [Unknown]
  - Malaise [Unknown]
  - Haematemesis [Unknown]
